FAERS Safety Report 7636676 (Version 1)
Quarter: 2020Q3

REPORT INFORMATION
  Report Type: Report from Study
  Country: ZA (occurrence: ZA)
  Receive Date: 20101021
  Receipt Date: 20101021
  Transmission Date: 20201104
  Serious: Yes (Hospitalization)
  Sender: FDA-Public Use
  Company Number: ZA-WYE-H18260010

PATIENT
  Age: 58 Year
  Sex: Male
  Weight: 158.5 kg

DRUGS (8)
  1. INTERFERON ALFA NOS [Suspect]
     Active Substance: INTERFERON ALFA-2A OR INTERFERON ALFA-2B
     Indication: RENAL CANCER METASTATIC
     Dosage: 9 MU 3 X WEEKLY
     Route: 058
     Dates: start: 20100527
  2. SPIRONOLACTONE. [Concomitant]
     Active Substance: SPIRONOLACTONE
     Indication: HYPERTENSION
     Dosage: UNSPECIFIED
     Dates: start: 20100617
  3. BEVACIZUMAB. [Suspect]
     Active Substance: BEVACIZUMAB
     Indication: RENAL CANCER METASTATIC
     Route: 042
     Dates: start: 20100527
  4. TORASEMIDE [Concomitant]
     Indication: HYPERTENSION
     Dosage: UNSPECIFIED
     Dates: start: 20100624
  5. OMEPRAZOLE. [Concomitant]
     Active Substance: OMEPRAZOLE
     Indication: GASTRITIS
     Dosage: UNSPECIFIED
     Dates: start: 20100707
  6. ENSURE [Concomitant]
     Indication: HYPOALBUMINAEMIA
     Dosage: UNSPECIFIED
     Dates: start: 20100701
  7. CLOBAZAM. [Concomitant]
     Active Substance: CLOBAZAM
     Indication: ANXIETY
     Dosage: UNSPECIFIED
     Dates: start: 20100908
  8. GLUCOPHAGE [Concomitant]
     Active Substance: METFORMIN HYDROCHLORIDE
     Indication: DIABETES MELLITUS
     Dosage: UNSPECIFIED
     Dates: start: 200705

REACTIONS (1)
  - Ascites [Not Recovered/Not Resolved]

NARRATIVE: CASE EVENT DATE: 20100923
